FAERS Safety Report 6188069-8 (Version None)
Quarter: 2009Q2

REPORT INFORMATION
  Report Type: 
  Country: None (occurrence: None)
  Receive Date: 20090513
  Receipt Date: 20090507
  Transmission Date: 20091009
  Serious: Yes (Hospitalization)
  Sender: FDA-Public Use
  Company Number: AT-ALLERGAN-0906454US

PATIENT
  Age: 68 Year
  Sex: Female

DRUGS (1)
  1. COMBIGAN [Suspect]
     Indication: GLAUCOMA
     Dosage: UNK, BID
     Route: 047

REACTIONS (3)
  - GAIT DISTURBANCE [None]
  - PARAESTHESIA [None]
  - SKIN DISCOLOURATION [None]
